FAERS Safety Report 24234307 (Version 1)
Quarter: 2024Q3

REPORT INFORMATION
  Report Type: Spontaneous
  Country: FR (occurrence: FR)
  Receive Date: 20240821
  Receipt Date: 20240821
  Transmission Date: 20241017
  Serious: Yes (Other)
  Sender: PFIZER
  Company Number: US-ROCHE-10000050076

PATIENT
  Age: 64 Year
  Sex: Female

DRUGS (2)
  1. PACLITAXEL [Suspect]
     Active Substance: PACLITAXEL
     Indication: HER2 positive breast cancer
     Dosage: UNK
     Route: 065
  2. TRASTUZUMAB [Suspect]
     Active Substance: TRASTUZUMAB
     Indication: HER2 positive breast cancer
     Dosage: UNK
     Route: 065

REACTIONS (7)
  - Diarrhoea [Unknown]
  - Neuropathy peripheral [Recovering/Resolving]
  - Sensory loss [Recovering/Resolving]
  - Motor dysfunction [Recovering/Resolving]
  - Hyporeflexia [Recovering/Resolving]
  - Magnesium deficiency [Unknown]
  - Vitamin B6 deficiency [Unknown]
